FAERS Safety Report 17228293 (Version 2)
Quarter: 2020Q2

REPORT INFORMATION
  Report Type: Report from Study
  Country: IT (occurrence: IT)
  Receive Date: 20200103
  Receipt Date: 20200423
  Transmission Date: 20200713
  Serious: Yes (Other)
  Sender: FDA-Public Use
  Company Number: IT-TEVA-2019-IT-1161194

PATIENT
  Age: 80 Year
  Sex: Female

DRUGS (3)
  1. LEVOFLOXACIN. [Suspect]
     Active Substance: LEVOFLOXACIN
     Indication: BRONCHITIS
     Dosage: 1 DF
     Route: 048
     Dates: end: 20191031
  2. ITRACONAZOLO DOC GENERICI 100 MG CAPSULE RIGIDE [Concomitant]
     Dosage: 1 DF
     Route: 048
  3. ZEFFIX 100 MG FILM-COATED TABLETS [Concomitant]
     Dosage: 1 DF
     Route: 048

REACTIONS (2)
  - Toxic skin eruption [Recovering/Resolving]
  - Rash maculo-papular [Recovering/Resolving]

NARRATIVE: CASE EVENT DATE: 20191028
